FAERS Safety Report 12765654 (Version 1)
Quarter: 2016Q3

REPORT INFORMATION
  Report Type: Spontaneous
  Country: US (occurrence: US)
  Receive Date: 20160915
  Receipt Date: 20160915
  Transmission Date: 20161109
  Serious: No
  Sender: FDA-Public Use
  Company Number: None

PATIENT
  Age: 65 Year
  Sex: Male

DRUGS (2)
  1. NEXAVAR [Suspect]
     Active Substance: SORAFENIB
     Indication: BRONCHIAL CARCINOMA
     Route: 048
     Dates: start: 20160413
  2. NEXAVAR [Suspect]
     Active Substance: SORAFENIB
     Indication: HEPATIC CANCER
     Route: 048
     Dates: start: 20160413

REACTIONS (3)
  - Pain [None]
  - Agitation [None]
  - Diarrhoea [None]

NARRATIVE: CASE EVENT DATE: 20160801
